FAERS Safety Report 8928623 (Version 1)
Quarter: 2012Q4

REPORT INFORMATION
  Report Type: Spontaneous
  Country: US (occurrence: None)
  Receive Date: 20121126
  Receipt Date: 20121126
  Transmission Date: 20130627
  Serious: Yes (Other)
  Sender: FDA-Public Use
  Company Number: None

PATIENT
  Sex: Female
  Weight: 62.6 kg

DRUGS (2)
  1. XGEVA AMGEN [Suspect]
     Indication: OSTEOPOROSIS
     Dosage: once a month IV
     Route: 042
     Dates: start: 20120301, end: 20120901
  2. XGEVA AMGEN [Suspect]
     Indication: PROPHYLAXIS
     Dosage: once a month IV
     Route: 042
     Dates: start: 20120301, end: 20120901

REACTIONS (1)
  - Osteonecrosis of jaw [None]
